FAERS Safety Report 7421472-4 (Version None)
Quarter: 2011Q2

REPORT INFORMATION
  Report Type: 
  Country: None (occurrence: None)
  Receive Date: 20110418
  Receipt Date: 20110301
  Transmission Date: 20111010
  Serious: No
  Sender: FDA-Public Use
  Company Number: US-JNJFOC-20110204055

PATIENT
  Age: 27 Year
  Sex: Male
  Weight: 98.43 kg

DRUGS (3)
  1. CELEXA [Concomitant]
     Indication: SCHIZOAFFECTIVE DISORDER
  2. INVEGA SUSTENNA [Suspect]
     Indication: SCHIZOPHRENIA
     Route: 030
  3. INVEGA [Concomitant]
     Indication: SCHIZOAFFECTIVE DISORDER

REACTIONS (4)
  - EUPHORIC MOOD [None]
  - ELEVATED MOOD [None]
  - INAPPROPRIATE AFFECT [None]
  - PRODUCT QUALITY ISSUE [None]
